FAERS Safety Report 4922351-4 (Version None)
Quarter: 2006Q1

REPORT INFORMATION
  Report Type: 
  Country: None (occurrence: None)
  Receive Date: 20060224
  Receipt Date: 20051214
  Transmission Date: 20060701
  Serious: Yes (Hospitalization, Other)
  Sender: FDA-Public Use
  Company Number: US-MERCK-0512USA02389

PATIENT
  Age: 54 Year
  Sex: Male
  Weight: 114 kg

DRUGS (2)
  1. VIOXX [Suspect]
     Indication: ARTHRITIS
     Route: 048
     Dates: start: 19990908
  2. ASPIRIN [Concomitant]
     Route: 065

REACTIONS (16)
  - ASTHENIA [None]
  - ATELECTASIS [None]
  - CAROTID ARTERY STENOSIS [None]
  - CEREBROVASCULAR ACCIDENT [None]
  - CHRONIC OBSTRUCTIVE PULMONARY DISEASE [None]
  - DEHYDRATION [None]
  - DIPLOPIA [None]
  - FISTULA REPAIR [None]
  - GASTRITIS [None]
  - HYPOTENSION [None]
  - HYPOXIA [None]
  - LOBAR PNEUMONIA [None]
  - PLEURAL EFFUSION [None]
  - SPEECH DISORDER [None]
  - SYNCOPE [None]
  - TRANSIENT ISCHAEMIC ATTACK [None]
